FAERS Safety Report 5474230-4 (Version None)
Quarter: 2007Q4

REPORT INFORMATION
  Report Type: 
  Country: None (occurrence: None)
  Receive Date: 20071002
  Receipt Date: 20070523
  Transmission Date: 20080405
  Serious: No
  Sender: FDA-Public Use
  Company Number: US-ASTRAZENECA-2007UW12807

PATIENT
  Age: 77 Year
  Sex: Female
  Weight: 58.5 kg

DRUGS (2)
  1. ARIMIDEX [Suspect]
     Indication: BREAST CANCER FEMALE
     Route: 048
     Dates: start: 20070201
  2. PAMELOR [Concomitant]

REACTIONS (2)
  - HOT FLUSH [None]
  - TACHYCARDIA [None]
